FAERS Safety Report 6492775-5 (Version None)
Quarter: 2009Q4

REPORT INFORMATION
  Report Type: 
  Country: None (occurrence: None)
  Receive Date: 20091214
  Receipt Date: 20091204
  Transmission Date: 20100525
  Serious: Yes (Death)
  Sender: FDA-Public Use
  Company Number: JP-SANOFI-AVENTIS-2009SA007470

PATIENT
  Age: 45 Year
  Sex: Male

DRUGS (4)
  1. ZOLPIDEM TARTRATE [Suspect]
     Indication: DRUG USE FOR UNKNOWN INDICATION
     Dosage: HAD CONSUMED TOGETHER THE 15-DAY SUPPLY OF ZOLPIDEM.
     Route: 048
  2. MIRTAZAPINE [Suspect]
     Indication: DRUG USE FOR UNKNOWN INDICATION
     Route: 048
  3. ALCOHOL [Suspect]
     Indication: ALCOHOL USE
     Dosage: PATIENT SEEMED TO HAVE DRUNK A LARGE QUANTITY OF ALCOHOL.
     Route: 048
  4. RIZE [Concomitant]
     Indication: DRUG USE FOR UNKNOWN INDICATION
     Route: 048

REACTIONS (1)
  - DEATH [None]
